FAERS Safety Report 7399325-X (Version None)
Quarter: 2011Q2

REPORT INFORMATION
  Report Type: 
  Country: None (occurrence: None)
  Receive Date: 20110407
  Receipt Date: 20110401
  Transmission Date: 20111010
  Serious: Yes (Hospitalization)
  Sender: FDA-Public Use
  Company Number: US-ALEXION-A201100158

PATIENT
  Sex: Male
  Weight: 111.02 kg

DRUGS (3)
  1. SOLIRIS [Suspect]
     Dosage: 900 MG, Q2W
     Route: 042
     Dates: start: 20080601, end: 20110129
  2. SOLIRIS [Suspect]
     Dosage: 900 MG, Q2W
     Route: 042
     Dates: start: 20110310
  3. SOLIRIS [Suspect]
     Indication: PAROXYSMAL NOCTURNAL HAEMOGLOBINURIA
     Dosage: 600 MG, QW
     Route: 042
     Dates: start: 20080509, end: 20080501

REACTIONS (8)
  - CELLULITIS [None]
  - DYSPHAGIA [None]
  - PSEUDOMONAL SEPSIS [None]
  - FACIAL PAIN [None]
  - APLASTIC ANAEMIA [None]
  - PANCYTOPENIA [None]
  - GINGIVITIS [None]
  - PYREXIA [None]
